FAERS Safety Report 6842019 (Version 5)
Quarter: 2013Q4

REPORT INFORMATION
  Report Type: Spontaneous
  Country: US (occurrence: US)
  Receive Date: 20081211
  Receipt Date: 20131217
  Transmission Date: 20140711
  Serious: Yes (Other)
  Sender: FDA-Public Use
  Company Number: US-BAYER-200839899NA

PATIENT
  Age: 24 Year
  Sex: Female
  Weight: 108.84 kg

DRUGS (1)
  1. MIRENA [Suspect]
     Indication: CONTRACEPTION
     Dosage: 20 ?G (DAILY DOSE), , INTRA-UTERINE
     Route: 015
     Dates: start: 20051213, end: 20091012

REACTIONS (14)
  - Uterine perforation [Recovered/Resolved]
  - Pregnancy with contraceptive device [Recovered/Resolved]
  - Blood pressure increased [Unknown]
  - Oedema peripheral [Recovered/Resolved]
  - Depression [None]
  - Psychological trauma [None]
  - Anxiety [None]
  - Fear of death [None]
  - Emotional distress [None]
  - Pain [None]
  - Abasia [None]
  - Emotional disorder [None]
  - Injury [Recovered/Resolved]
  - Device dislocation [Recovered/Resolved]
